FAERS Safety Report 6624864-6 (Version None)
Quarter: 2010Q1

REPORT INFORMATION
  Report Type: 
  Country: None (occurrence: None)
  Receive Date: 20100305
  Receipt Date: 20100208
  Transmission Date: 20100710
  Serious: Yes (Other)
  Sender: FDA-Public Use
  Company Number: JPI-P-009698

PATIENT
  Age: 56 Year
  Sex: Male

DRUGS (8)
  1. XYREM [Suspect]
     Indication: NARCOLEPSY
     Dosage: 4.5 GM (2.25 GM, 2 IN 1 D), ORAL, 9 GM (4.5 GM, 2 IN 1 D), ORAL
     Route: 048
     Dates: start: 20040611
  2. XYREM [Suspect]
     Indication: SLEEP APNOEA SYNDROME
     Dosage: 4.5 GM (2.25 GM, 2 IN 1 D), ORAL, 9 GM (4.5 GM, 2 IN 1 D), ORAL
     Route: 048
     Dates: start: 20040611
  3. XYREM [Suspect]
     Indication: NARCOLEPSY
     Dosage: 4.5 GM (2.25 GM, 2 IN 1 D), ORAL, 9 GM (4.5 GM, 2 IN 1 D), ORAL
     Route: 048
     Dates: start: 20090820
  4. XYREM [Suspect]
     Indication: SLEEP APNOEA SYNDROME
     Dosage: 4.5 GM (2.25 GM, 2 IN 1 D), ORAL, 9 GM (4.5 GM, 2 IN 1 D), ORAL
     Route: 048
     Dates: start: 20090820
  5. LISINOPRIL [Concomitant]
  6. HYDROCHLOROTHIAZIDE [Concomitant]
  7. ARMODAFINIL [Concomitant]
  8. LEVOTHYROXINE SODIUM [Concomitant]

REACTIONS (2)
  - ARTHRITIS [None]
  - SPINAL COLUMN STENOSIS [None]
